FAERS Safety Report 8361079-8 (Version None)
Quarter: 2012Q2

REPORT INFORMATION
  Report Type: 
  Country: None (occurrence: None)
  Receive Date: 20120515
  Receipt Date: 20120507
  Transmission Date: 20120825
  Serious: Yes (Hospitalization, Other)
  Sender: FDA-Public Use
  Company Number: US-BAYER-201023019NA

PATIENT
  Age: 33 Year
  Sex: Female
  Weight: 81.633 kg

DRUGS (19)
  1. ADDERALL XR 10 [Concomitant]
  2. VITAMIN D [COLECALCIFEROL] [Concomitant]
     Dosage: UNK
     Route: 048
     Dates: start: 20090101
  3. FLONASE [Concomitant]
     Dosage: UNK
     Route: 045
     Dates: start: 20080501, end: 20080501
  4. KLONOPIN [Concomitant]
     Dosage: 0.5 MG, UNK
     Dates: start: 20090401, end: 20090401
  5. PROMETHAZINE [Concomitant]
  6. VERAPAMIL [Concomitant]
  7. MAXALT-MLT [Concomitant]
  8. PROVENTIL-HFA [Concomitant]
     Dosage: UNK
     Route: 055
     Dates: start: 20080101, end: 20080101
  9. CLARITIN [Concomitant]
     Dosage: UNK
     Route: 048
     Dates: start: 20070801
  10. METFORMIN HCL [Concomitant]
     Dosage: 1500 MG, QD
     Route: 048
     Dates: start: 20070101
  11. YAZ [Suspect]
     Route: 048
     Dates: start: 20030101, end: 20090715
  12. YASMIN [Suspect]
     Dosage: 1 DF, QD
     Dates: start: 20030101, end: 20090701
  13. TIZANIDINE [Concomitant]
     Dosage: 40 MG, OM
  14. FIORICET [Concomitant]
  15. CYANOCOBALAMIN [Concomitant]
     Dosage: 1000 MCG/ML, UNK
     Dates: start: 20090301, end: 20090301
  16. POTASSIUM CITRATE/CITRIC ACID [Concomitant]
     Dosage: UNK
     Route: 048
     Dates: start: 20071201
  17. ATIVAN [Concomitant]
     Indication: ANXIETY
     Dosage: 1 MG, PRN
     Route: 048
     Dates: start: 20090101, end: 20090101
  18. SINGULAIR [Concomitant]
     Dosage: 10 MG, HS
     Route: 048
  19. PHENERGAN [Concomitant]
     Dosage: UNK
     Route: 048
     Dates: start: 20090101, end: 20090301

REACTIONS (14)
  - VISUAL FIELD DEFECT [None]
  - ASTHENIA [None]
  - CEREBROVASCULAR ACCIDENT [None]
  - DYSPHAGIA [None]
  - DYSARTHRIA [None]
  - HEMIPARESIS [None]
  - GAIT DISTURBANCE [None]
  - PARAPLEGIA [None]
  - TRANSIENT ISCHAEMIC ATTACK [None]
  - DISORIENTATION [None]
  - APHASIA [None]
  - FATIGUE [None]
  - DEPRESSION [None]
  - NERVE INJURY [None]
